FAERS Safety Report 10494328 (Version 2)
Quarter: 2014Q4

REPORT INFORMATION
  Report Type: Spontaneous
  Country: DE (occurrence: None)
  Receive Date: 20141001
  Receipt Date: 20141110
  Transmission Date: 20150528
  Serious: Yes (Death, Hospitalization, Other)
  Sender: FDA-Public Use
  Company Number: VAL_03448_2014

PATIENT
  Age: 48 Year
  Sex: Female
  Weight: 62 kg

DRUGS (3)
  1. NORDAZEPAM [Suspect]
     Active Substance: NORDAZEPAM
     Indication: PRODUCT USED FOR UNKNOWN INDICATION
     Dosage: (FEMORAL BLOOD VEIN CONCENTRATION 2.9 MG/L; NASOGASTRIC)
     Route: 048
  2. METOPROLOL TARTRATE. [Suspect]
     Active Substance: METOPROLOL TARTRATE
     Indication: INTENTIONAL PRODUCT MISUSE
     Dosage: (FEMORAL BLOOD CONCENTRATION: 29.8 MG/L; NASOGASTRIC)
     Route: 048
  3. PETHIDIN [Suspect]
     Active Substance: MEPERIDINE
     Indication: PRODUCT USED FOR UNKNOWN INDICATION
     Dosage: (FEMORAL VEIN BLOOD CONCENTRATION POSITIVE; NASOGASTRIC)
     Route: 048

REACTIONS (10)
  - Toxicity to various agents [None]
  - Drug level above therapeutic [None]
  - Poisoning [None]
  - Pulmonary oedema [None]
  - Loss of consciousness [None]
  - Brain oedema [None]
  - Cardiogenic shock [None]
  - Cardiac failure [None]
  - Congestive cardiomyopathy [None]
  - Victim of homicide [None]
